FAERS Safety Report 9286631 (Version 1)
Quarter: 2013Q2

REPORT INFORMATION
  Report Type: Spontaneous
  Country: AT (occurrence: AT)
  Receive Date: 20130513
  Receipt Date: 20130513
  Transmission Date: 20140414
  Serious: Yes (Hospitalization)
  Sender: FDA-Public Use
  Company Number: AT-ASTRAZENECA-2013SE30742

PATIENT
  Age: 20 Year
  Sex: Female
  Weight: 65 kg

DRUGS (7)
  1. SEROQUEL [Suspect]
     Route: 048
     Dates: start: 20120628, end: 20120628
  2. DEPAKINE [Suspect]
     Dosage: 12-15 PIECES, ONCE/SINGLE ADMINISTRATION
     Route: 065
     Dates: start: 20120628, end: 20120628
  3. COCAINE [Concomitant]
  4. ALCOHOL [Concomitant]
  5. DHC [Concomitant]
  6. ECSTASY [Concomitant]
  7. SPEED [Concomitant]

REACTIONS (5)
  - Drug abuse [Recovered/Resolved]
  - Ammonia increased [Recovered/Resolved]
  - Hypotension [Recovered/Resolved]
  - Sinus bradycardia [Recovered/Resolved]
  - Somnolence [Recovered/Resolved]
